FAERS Safety Report 4290632-6 (Version None)
Quarter: 2004Q1

REPORT INFORMATION
  Report Type: 
  Country: None (occurrence: None)
  Receive Date: 20040209
  Receipt Date: 20040128
  Transmission Date: 20041129
  Serious: Yes (Life-Threatening, Hospitalization, Other)
  Sender: FDA-Public Use
  Company Number: A-CH2003-02419

PATIENT
  Age: 66 Year
  Sex: Male
  Weight: 85 kg

DRUGS (9)
  1. TRACLEER [Suspect]
     Indication: PULMONARY HYPERTENSION
     Dosage: SEE IMAGE
     Route: 048
     Dates: start: 20020829, end: 20020928
  2. TRACLEER [Suspect]
     Indication: PULMONARY HYPERTENSION
     Dosage: SEE IMAGE
     Route: 048
     Dates: start: 20020929, end: 20031006
  3. HYDROCHLOROTHIAZIDE [Concomitant]
  4. AMLODIPINE [Concomitant]
  5. IRON (IRON) [Concomitant]
  6. ALLOPURINOL [Concomitant]
  7. PANTOPRAZOLE (PANTOPRAZOLE) [Concomitant]
  8. TOREM (TORASEMIDE) [Concomitant]
  9. ALDACTONE [Concomitant]

REACTIONS (7)
  - ASCITES [None]
  - BLOOD ALBUMIN DECREASED [None]
  - BLOOD CHOLINESTERASE DECREASED [None]
  - ENCEPHALOPATHY [None]
  - HAEMOGLOBIN DECREASED [None]
  - HEPATIC FUNCTION ABNORMAL [None]
  - PROTHROMBIN TIME SHORTENED [None]
